FAERS Safety Report 18835807 (Version 1)
Quarter: 2021Q1

REPORT INFORMATION
  Report Type: Spontaneous
  Country: US (occurrence: US)
  Receive Date: 20210203
  Receipt Date: 20210203
  Transmission Date: 20210419
  Serious: No
  Sender: FDA-Public Use
  Company Number: US-ALLERGAN-2047135US

PATIENT
  Sex: Female

DRUGS (3)
  1. BOTOX [Suspect]
     Active Substance: ONABOTULINUMTOXINA
     Indication: TREMOR
  2. BOTOX [Suspect]
     Active Substance: ONABOTULINUMTOXINA
     Indication: PARKINSON^S DISEASE
     Dosage: 38 UNITS, SINGLE
     Dates: start: 20201111, end: 20201111
  3. BOTOX [Suspect]
     Active Substance: ONABOTULINUMTOXINA
     Indication: TREMOR
     Dosage: UNK, SINGLE
     Dates: start: 2017, end: 2017

REACTIONS (4)
  - Off label use [Unknown]
  - Head discomfort [Not Recovered/Not Resolved]
  - Therapeutic response decreased [Unknown]
  - Injection site bruising [Recovered/Resolved]

NARRATIVE: CASE EVENT DATE: 2017
